FAERS Safety Report 6093533-6 (Version None)
Quarter: 2009Q1

REPORT INFORMATION
  Report Type: 
  Country: None (occurrence: None)
  Receive Date: 20090219
  Receipt Date: 20081027
  Transmission Date: 20090719
  Serious: No
  Sender: FDA-Public Use
  Company Number: WAES 0810USA04758

PATIENT
  Sex: Female

DRUGS (7)
  1. JANUVIA [Suspect]
     Indication: DIABETES MELLITUS
     Dosage: 50 MG/DAILY/PO
     Route: 048
     Dates: start: 20081003
  2. BYETTA [Suspect]
  3. AMBIEN CR [Concomitant]
  4. CHANTIX [Concomitant]
  5. CYMBALTA [Concomitant]
  6. LEXAPRO [Concomitant]
  7. BUPROPION HYDROCHLORIDE [Concomitant]

REACTIONS (1)
  - WEIGHT INCREASED [None]
